FAERS Safety Report 18031325 (Version 1)
Quarter: 2020Q3

REPORT INFORMATION
  Report Type: Spontaneous
  Country: FR (occurrence: FR)
  Receive Date: 20200716
  Receipt Date: 20200716
  Transmission Date: 20201103
  Serious: Yes (Death)
  Sender: FDA-Public Use
  Company Number: FR-TEVA-2020-FR-1800198

PATIENT
  Age: 87 Year
  Sex: Male

DRUGS (6)
  1. SIMVASTATINE [Concomitant]
     Active Substance: SIMVASTATIN
     Indication: DYSLIPIDAEMIA
     Dosage: UNKNOWN
     Route: 048
  2. PAROXETINE. [Suspect]
     Active Substance: PAROXETINE
     Indication: COGNITIVE DISORDER
     Dosage: UNKNOWN
     Route: 048
  3. ACEBUTOLOL BASE [Concomitant]
     Active Substance: ACEBUTOLOL
     Indication: ATRIAL FIBRILLATION
     Dosage: UNKNOWN
     Route: 048
  4. AMLOR [Concomitant]
     Active Substance: AMLODIPINE BESYLATE
     Indication: HYPERTENSION
     Dosage: UNKNOWN
     Route: 048
  5. ELIQUIS [Interacting]
     Active Substance: APIXABAN
     Indication: ATRIAL FIBRILLATION
     Dosage: UNKNOWN
     Route: 048
     Dates: end: 20200615
  6. UROREC [Concomitant]
     Active Substance: SILODOSIN
     Indication: BENIGN PROSTATIC HYPERPLASIA
     Dosage: UNKNOWN
     Route: 048

REACTIONS (2)
  - Drug interaction [Unknown]
  - Subdural haematoma [Fatal]

NARRATIVE: CASE EVENT DATE: 202006
